FAERS Safety Report 8274409-2 (Version None)
Quarter: 2012Q2

REPORT INFORMATION
  Report Type: 
  Country: None (occurrence: None)
  Receive Date: 20120411
  Receipt Date: 20120402
  Transmission Date: 20120825
  Serious: Yes (Hospitalization, Other)
  Sender: FDA-Public Use
  Company Number: US-JNJFOC-20120401295

PATIENT
  Sex: Male
  Weight: 58.97 kg

DRUGS (5)
  1. SIMVASTATIN [Concomitant]
     Indication: BLOOD CHOLESTEROL INCREASED
     Route: 048
     Dates: start: 20070101
  2. REMICADE [Suspect]
     Indication: ANKYLOSING SPONDYLITIS
     Route: 042
     Dates: start: 20120322
  3. AMLODIPINE [Concomitant]
     Indication: HYPERTENSION
     Route: 048
     Dates: start: 20090101
  4. OMEPRAZOLE [Concomitant]
     Indication: GASTROOESOPHAGEAL REFLUX DISEASE
     Route: 048
     Dates: start: 20090101
  5. REMICADE [Suspect]
     Route: 042
     Dates: start: 20070101, end: 20111101

REACTIONS (7)
  - TRANSIENT ISCHAEMIC ATTACK [None]
  - ADVERSE EVENT [None]
  - PRURITUS [None]
  - ARTHROPATHY [None]
  - ARRHYTHMIA [None]
  - PARAESTHESIA [None]
  - ARTHRITIS [None]
